FAERS Safety Report 5257360-1 (Version None)
Quarter: 2007Q1

REPORT INFORMATION
  Report Type: 
  Country: None (occurrence: None)
  Receive Date: 20070307
  Receipt Date: 20070228
  Transmission Date: 20070707
  Serious: Yes (Hospitalization)
  Sender: FDA-Public Use
  Company Number: US-MERCK-0703USA00093

PATIENT
  Age: 63 Year
  Sex: Male

DRUGS (8)
  1. JANUVIA [Suspect]
     Indication: DIABETES MELLITUS
     Route: 048
     Dates: start: 20070101, end: 20070228
  2. LIPITOR [Concomitant]
     Route: 065
  3. GLUCOPHAGE [Concomitant]
     Route: 065
  4. HYDROCHLOROTHIAZIDE [Concomitant]
     Route: 065
  5. LOSARTAN POTASSIUM [Concomitant]
     Route: 065
  6. AVANDIA [Concomitant]
     Route: 065
  7. GINKGO [Concomitant]
     Route: 065
  8. CHROMIUM (UNSPECIFIED) [Concomitant]
     Route: 065

REACTIONS (1)
  - RENAL FAILURE ACUTE [None]
